FAERS Safety Report 6331051-8 (Version None)
Quarter: 2009Q3

REPORT INFORMATION
  Report Type: 
  Country: None (occurrence: None)
  Receive Date: 20090827
  Receipt Date: 20090821
  Transmission Date: 20100115
  Serious: Yes (Life-Threatening)
  Sender: FDA-Public Use
  Company Number: A0804593A

PATIENT
  Age: 68 Year
  Sex: Male

DRUGS (6)
  1. AVANDIA [Suspect]
     Indication: DIABETES MELLITUS
     Dosage: 8MG UNKNOWN
  2. DICLOFENAC SODIUM [Concomitant]
     Dosage: 100MG UNKNOWN
  3. SCUTAMIL C [Concomitant]
  4. ZOLOFT [Concomitant]
     Dosage: 50MG UNKNOWN
  5. RIVOTRIL [Concomitant]
  6. STEMETIL [Concomitant]

REACTIONS (1)
  - MYOCARDIAL INFARCTION [None]
